FAERS Safety Report 4378592-0 (Version None)
Quarter: 2004Q2

REPORT INFORMATION
  Report Type: 
  Country: None (occurrence: None)
  Receive Date: 20040609
  Receipt Date: 20040526
  Transmission Date: 20050107
  Serious: Yes (Death, Other)
  Sender: FDA-Public Use
  Company Number: DE-JNJFOC-20040404685

PATIENT
  Age: 60 Year
  Sex: Male

DRUGS (8)
  1. REOPRO [Suspect]
     Indication: ACUTE MYOCARDIAL INFARCTION
     Dosage: SEE IMAGE
     Dates: start: 20020101, end: 20020101
  2. REOPRO [Suspect]
     Indication: ACUTE MYOCARDIAL INFARCTION
     Dosage: SEE IMAGE
     Dates: start: 20020101
  3. RETEVASE [Suspect]
     Indication: ACUTE MYOCARDIAL INFARCTION
     Dosage: 5 IU, 2 IN 1 DAY, INTRAVENOUS BOLUS
     Route: 040
     Dates: start: 20020101, end: 20020101
  4. ASPIRIN [Concomitant]
  5. HEPARIN [Concomitant]
  6. CLOPIDOGREL (CLOPIDOGREL) [Concomitant]
  7. CALCIUM CHANNEL BLOCKER  (CALCIUM CHANNEL BLOCKERS) [Concomitant]
  8. ANTIDIABETIC DRUG (ANTI-DIABETICS) [Concomitant]

REACTIONS (13)
  - CARDIOGENIC SHOCK [None]
  - CORONARY ARTERY DISEASE [None]
  - CORONARY ARTERY OCCLUSION [None]
  - DYSPNOEA [None]
  - EJECTION FRACTION DECREASED [None]
  - HAEMODIALYSIS [None]
  - HAEMOPTYSIS [None]
  - METABOLIC ACIDOSIS [None]
  - MULTI-ORGAN FAILURE [None]
  - RENAL FAILURE [None]
  - RESPIRATORY ACIDOSIS [None]
  - RESPIRATORY FAILURE [None]
  - TACHYPNOEA [None]
